FAERS Safety Report 20875879 (Version 1)
Quarter: 2022Q2

REPORT INFORMATION
  Report Type: Spontaneous
  Country: US (occurrence: US)
  Receive Date: 20220526
  Receipt Date: 20220526
  Transmission Date: 20220721
  Serious: No
  Sender: FDA-Public Use
  Company Number: US-BRISTOL-MYERS SQUIBB COMPANY-2022-046964

PATIENT
  Age: 83 Year
  Sex: Female
  Weight: 72.12 kg

DRUGS (1)
  1. POMALYST [Suspect]
     Active Substance: POMALIDOMIDE
     Indication: Plasma cell myeloma
     Dosage: FREQ: 3WKON/1WKOFF.
     Route: 048
     Dates: start: 20220201

REACTIONS (7)
  - Adverse event [Unknown]
  - Constipation [Unknown]
  - Diarrhoea [Unknown]
  - Abdominal pain upper [Unknown]
  - Asthenia [Unknown]
  - Arthralgia [Unknown]
  - Myalgia [Unknown]
